FAERS Safety Report 13038682 (Version 1)
Quarter: 2016Q4

REPORT INFORMATION
  Report Type: Spontaneous
  Country: SK (occurrence: SK)
  Receive Date: 20161219
  Receipt Date: 20161219
  Transmission Date: 20170207
  Serious: Yes (Death, Life-Threatening)
  Sender: FDA-Public Use
  Company Number: SK-ROCHE-1868642

PATIENT
  Age: 34 Year
  Sex: Male
  Weight: 82 kg

DRUGS (1)
  1. ACTILYSE [Suspect]
     Active Substance: ALTEPLASE
     Indication: CEREBROVASCULAR ACCIDENT
     Route: 051
     Dates: start: 20160209, end: 20160209

REACTIONS (3)
  - Carotid artery occlusion [Fatal]
  - Restlessness [Unknown]
  - Drug ineffective [Fatal]

NARRATIVE: CASE EVENT DATE: 20160210
